FAERS Safety Report 23613305 (Version 2)
Quarter: 2024Q2

REPORT INFORMATION
  Report Type: Report from Study
  Country: JP (occurrence: None)
  Receive Date: 20240308
  Receipt Date: 20240611
  Transmission Date: 20240716
  Serious: Yes (Hospitalization)
  Sender: FDA-Public Use
  Company Number: 2023A253911

PATIENT
  Age: 78 Year
  Sex: Female

DRUGS (3)
  1. DAPAGLIFLOZIN [Suspect]
     Active Substance: DAPAGLIFLOZIN
     Indication: Chronic kidney disease
     Route: 048
     Dates: start: 20220524, end: 20220726
  2. XARELTO [Concomitant]
     Active Substance: RIVAROXABAN
     Dosage: DOSE UNKNOWN, OPTIMAL DOSE
     Route: 048
     Dates: end: 20220726
  3. BISOPROLOL FUMARATE [Concomitant]
     Active Substance: BISOPROLOL FUMARATE
     Dosage: DOSE UNKNOWN, OPTIMAL DOSE
     Route: 048
     Dates: end: 20220726

REACTIONS (3)
  - Hepatic function abnormal [Unknown]
  - Jaundice [Unknown]
  - Cholecystitis [Unknown]

NARRATIVE: CASE EVENT DATE: 20220723
